FAERS Safety Report 9768708 (Version 1)
Quarter: 2013Q4

REPORT INFORMATION
  Report Type: Spontaneous
  Country: US (occurrence: US)
  Receive Date: 20131218
  Receipt Date: 20131218
  Transmission Date: 20140711
  Serious: No
  Sender: FDA-Public Use
  Company Number: US-BIOGENIDEC-2013BI118631

PATIENT
  Sex: Male

DRUGS (1)
  1. TYSABRI [Suspect]
     Indication: MULTIPLE SCLEROSIS
     Route: 042
     Dates: start: 20130313, end: 20130522

REACTIONS (4)
  - Abnormal dreams [Recovered/Resolved]
  - Middle insomnia [Recovered/Resolved]
  - Fear [Recovered/Resolved]
  - Infusion site bruising [Recovered/Resolved]
